FAERS Safety Report 6615125-X (Version None)
Quarter: 2010Q1

REPORT INFORMATION
  Report Type: 
  Country: None (occurrence: None)
  Receive Date: 20100305
  Receipt Date: 20100222
  Transmission Date: 20100710
  Serious: Yes (Life-Threatening, Hospitalization, Other)
  Sender: FDA-Public Use
  Company Number: US-BRISTOL-MYERS SQUIBB COMPANY-14988984

PATIENT
  Age: 31 Year
  Sex: Male

DRUGS (6)
  1. CIPROFLOXACIN [Suspect]
     Indication: TUBERCULOSIS
  2. STREPTOMYCIN [Suspect]
     Indication: TUBERCULOSIS
  3. ETHAMBUTOL HYDROCHLORIDE [Suspect]
     Indication: TUBERCULOSIS
  4. ISONIAZID [Suspect]
  5. RIFAMPICIN [Suspect]
  6. PYRAZINAMIDE [Suspect]

REACTIONS (3)
  - ACUTE HEPATIC FAILURE [None]
  - LIVER TRANSPLANT [None]
  - RENAL IMPAIRMENT [None]
